FAERS Safety Report 6186621-7 (Version None)
Quarter: 2009Q2

REPORT INFORMATION
  Report Type: 
  Country: None (occurrence: None)
  Receive Date: 20090512
  Receipt Date: 20090430
  Transmission Date: 20091009
  Serious: Yes (Hospitalization)
  Sender: FDA-Public Use
  Company Number: FR-PFIZER INC-2009205731

PATIENT
  Age: 26 Year

DRUGS (2)
  1. CYTOTEC [Suspect]
     Dosage: 200 UG, 2X/DAY
     Dates: start: 20090225
  2. MIFEGYNE [Suspect]
     Dosage: 600 MG, SINGLE
     Route: 048
     Dates: start: 20090223, end: 20090223

REACTIONS (1)
  - DRUG INEFFECTIVE FOR UNAPPROVED INDICATION [None]
